FAERS Safety Report 5299885-9 (Version None)
Quarter: 2007Q2

REPORT INFORMATION
  Report Type: 
  Country: None (occurrence: None)
  Receive Date: 20070410
  Receipt Date: 20070326
  Transmission Date: 20071010
  Serious: Yes (Other)
  Sender: FDA-Public Use
  Company Number: L07-FRA-01461-01

PATIENT
  Age: 59 Year
  Sex: Female

DRUGS (1)
  1. CITALOPRAM HYDROBROMIDE [Suspect]
     Indication: DEPRESSION

REACTIONS (5)
  - ARACHNOID CYST [None]
  - CEREBRAL ATROPHY [None]
  - COGNITIVE DISORDER [None]
  - DEMENTIA [None]
  - DRUG INEFFECTIVE [None]
